FAERS Safety Report 16954115 (Version 1)
Quarter: 2019Q4

REPORT INFORMATION
  Report Type: Spontaneous
  Country: KR (occurrence: KR)
  Receive Date: 20191023
  Receipt Date: 20191023
  Transmission Date: 20200122
  Serious: Yes (Other)
  Sender: FDA-Public Use
  Company Number: KR-AMNEAL PHARMACEUTICALS-2019-AMRX-02366

PATIENT
  Age: 42 Year
  Sex: Female

DRUGS (1)
  1. LIDOCAINE. [Suspect]
     Active Substance: LIDOCAINE
     Indication: DENTAL OPERATION
     Dosage: 2 PERCENT
     Route: 023

REACTIONS (1)
  - Paralysis [Recovered/Resolved]
